FAERS Safety Report 7521444-5 (Version None)
Quarter: 2011Q2

REPORT INFORMATION
  Report Type: 
  Country: None (occurrence: None)
  Receive Date: 20110603
  Receipt Date: 20110228
  Transmission Date: 20111010
  Serious: Yes (Other)
  Sender: FDA-Public Use
  Company Number: US-BAYER-2010-003096

PATIENT
  Age: 54 Year
  Sex: Female

DRUGS (2)
  1. PRILOSEC [Concomitant]
     Indication: DYSPEPSIA
  2. INTERFERON BETA-1B [Suspect]
     Indication: MULTIPLE SCLEROSIS
     Dosage: 8 MIU, QOD
     Route: 058
     Dates: start: 20040313

REACTIONS (2)
  - HAEMANGIOMA OF LIVER [None]
  - ABDOMINAL DISCOMFORT [None]
